FAERS Safety Report 8214546-1 (Version None)
Quarter: 2012Q1

REPORT INFORMATION
  Report Type: 
  Country: None (occurrence: None)
  Receive Date: 20120316
  Receipt Date: 20120309
  Transmission Date: 20120608
  Serious: Yes (Hospitalization)
  Sender: FDA-Public Use
  Company Number: IT-SANOFI-AVENTIS-2011SA076883

PATIENT
  Age: 82 Year
  Sex: Female

DRUGS (8)
  1. PLAVIX [Concomitant]
  2. LASIX [Suspect]
     Route: 048
     Dates: start: 20110103, end: 20110416
  3. LANSOPRAZOLE [Concomitant]
  4. SIMVASTATIN [Concomitant]
  5. LUVION [Concomitant]
  6. NITRODERM [Concomitant]
  7. RAMIPRIL [Concomitant]
  8. ASPIRIN [Concomitant]

REACTIONS (2)
  - URINE OUTPUT DECREASED [None]
  - CARDIAC FAILURE [None]
